FAERS Safety Report 18332200 (Version 1)
Quarter: 2020Q3

REPORT INFORMATION
  Report Type: Report from Study
  Country: BR (occurrence: BR)
  Receive Date: 20200930
  Receipt Date: 20200930
  Transmission Date: 20201103
  Serious: Yes (Hospitalization, Other)
  Sender: FDA-Public Use
  Company Number: NVSC2020BR262271

PATIENT
  Sex: Male

DRUGS (3)
  1. DIOVAN [Suspect]
     Active Substance: VALSARTAN
     Dosage: 360 MG (DISCONTINUED)
     Route: 065
  2. DIOVAN [Suspect]
     Active Substance: VALSARTAN
     Dosage: 160 MG UNK
     Route: 048
  3. DIOVAN [Suspect]
     Active Substance: VALSARTAN
     Indication: PRODUCT USED FOR UNKNOWN INDICATION
     Dosage: 80 MG (STARTED 10 YEARS AGO AND DISCONTINUED)
     Route: 048

REACTIONS (10)
  - Hypertension [Unknown]
  - Myocardial infarction [Unknown]
  - Blood pressure fluctuation [Unknown]
  - Visual impairment [Unknown]
  - Cataract [Unknown]
  - Inappropriate schedule of product administration [Unknown]
  - Retinal detachment [Unknown]
  - Fear [Unknown]
  - Thrombosis [Unknown]
  - Blindness unilateral [Unknown]
